FAERS Safety Report 4684691-6 (Version None)
Quarter: 2005Q2

REPORT INFORMATION
  Report Type: 
  Country: None (occurrence: None)
  Receive Date: 20050607
  Receipt Date: 20050218
  Transmission Date: 20051028
  Serious: Yes (Death, Other)
  Sender: FDA-Public Use
  Company Number: US-MERCK-0502USA02400

PATIENT
  Age: 75 Year
  Sex: Male
  Weight: 77 kg

DRUGS (11)
  1. VIOXX [Suspect]
     Indication: ARTHRALGIA
     Route: 048
     Dates: start: 20030919
  2. VIOXX [Suspect]
     Indication: PARAESTHESIA
     Route: 048
     Dates: start: 20030919
  3. PRILOSEC [Concomitant]
     Route: 065
  4. SYNTHROID [Concomitant]
     Route: 065
  5. ATENOLOL [Concomitant]
     Route: 065
  6. LIPITOR [Concomitant]
     Route: 065
  7. NORVASC [Concomitant]
     Route: 065
  8. LISINOPRIL [Concomitant]
     Route: 065
  9. INSULIN [Concomitant]
     Route: 065
  10. ASPIRIN [Concomitant]
     Route: 065
  11. COMBIVENT [Concomitant]
     Route: 065

REACTIONS (3)
  - CARDIAC ARREST [None]
  - LUNG CANCER METASTATIC [None]
  - METASTASES TO CENTRAL NERVOUS SYSTEM [None]
